FAERS Safety Report 7296973-2 (Version None)
Quarter: 2011Q1

REPORT INFORMATION
  Report Type: 
  Country: None (occurrence: None)
  Receive Date: 20110216
  Receipt Date: 20110205
  Transmission Date: 20110831
  Serious: Yes (Hospitalization)
  Sender: FDA-Public Use
  Company Number: US-JNJFOC-20110202859

PATIENT
  Sex: Female
  Weight: 78.47 kg

DRUGS (10)
  1. TRICOR [Concomitant]
  2. NEXIUM [Concomitant]
  3. DETROL LA [Concomitant]
  4. PRISTIQ [Concomitant]
  5. EXTRA STRENGTH TYLENOL PM [Suspect]
     Indication: INSOMNIA
     Route: 048
  6. METFORMIN [Concomitant]
     Route: 048
  7. JANUVIA [Concomitant]
  8. EXTRA STRENGTH TYLENOL PM [Suspect]
     Indication: BACK PAIN
     Route: 048
  9. LISINOPRIL [Concomitant]
  10. ASPIRIN [Concomitant]

REACTIONS (8)
  - VOMITING [None]
  - ANXIETY [None]
  - DIARRHOEA [None]
  - ASTHENIA [None]
  - HEADACHE [None]
  - PRODUCT CLOSURE ISSUE [None]
  - TREMOR [None]
  - NAUSEA [None]
